FAERS Safety Report 6128976-5 (Version None)
Quarter: 2009Q1

REPORT INFORMATION
  Report Type: 
  Country: None (occurrence: None)
  Receive Date: 20090324
  Receipt Date: 20090320
  Transmission Date: 20090719
  Serious: Yes (Death)
  Sender: FDA-Public Use
  Company Number: PHEH2009US02864

PATIENT
  Sex: Male

DRUGS (1)
  1. ELIDEL [Suspect]
     Dosage: UNK, UNK

REACTIONS (2)
  - ACUTE LYMPHOCYTIC LEUKAEMIA [None]
  - SEPTIC SHOCK [None]
